FAERS Safety Report 21207984 (Version 7)
Quarter: 2023Q2

REPORT INFORMATION
  Report Type: Spontaneous
  Country: US (occurrence: US)
  Receive Date: 20220812
  Receipt Date: 20230627
  Transmission Date: 20230721
  Serious: Yes (Other)
  Sender: FDA-Public Use
  Company Number: US-PFIZER INC-202200713945

PATIENT
  Age: 75 Year
  Sex: Male
  Weight: 104.33 kg

DRUGS (5)
  1. TIKOSYN [Suspect]
     Active Substance: DOFETILIDE
     Indication: Atrial fibrillation
     Dosage: 250 UG, 2X/DAY
     Route: 048
     Dates: start: 20211019
  2. TIKOSYN [Suspect]
     Active Substance: DOFETILIDE
     Dosage: 2 TABLETS IN THE AM, 1 TABLET IN THE PM
     Route: 048
     Dates: start: 20220519
  3. TIKOSYN [Suspect]
     Active Substance: DOFETILIDE
     Dosage: 500 UG, 2X/DAY
     Route: 048
     Dates: start: 20220729
  4. TIKOSYN [Suspect]
     Active Substance: DOFETILIDE
     Dosage: 500 UG, 2X/DAY
     Route: 048
  5. ELIQUIS [Concomitant]
     Active Substance: APIXABAN
     Dosage: 5 MG, 2X/DAY (5 MG TABLET, 1 TABLET ORAL TWO TIMES DAILY)
     Route: 048
     Dates: start: 20220506

REACTIONS (5)
  - Electrocardiogram QT prolonged [Unknown]
  - Drug ineffective [Unknown]
  - Off label use [Unknown]
  - Weight decreased [Unknown]
  - Loss of personal independence in daily activities [Unknown]

NARRATIVE: CASE EVENT DATE: 20220601
